FAERS Safety Report 5717504-1 (Version None)
Quarter: 2008Q2

REPORT INFORMATION
  Report Type: 
  Country: None (occurrence: None)
  Receive Date: 20080425
  Receipt Date: 20080423
  Transmission Date: 20081010
  Serious: Yes (Other)
  Sender: FDA-Public Use
  Company Number: DE-JNJFOC-20080406013

PATIENT
  Sex: Female

DRUGS (4)
  1. HALDOL DECANOAT [Suspect]
     Indication: DRUG USE FOR UNKNOWN INDICATION
     Route: 050
  2. DOMINAL [Concomitant]
     Route: 065
  3. CITALOPRAM HYDROBROMIDE [Concomitant]
     Route: 065
  4. ZYPREXA [Concomitant]
     Route: 065

REACTIONS (1)
  - HODGKIN'S DISEASE [None]
